FAERS Safety Report 6820619-8 (Version None)
Quarter: 2010Q3

REPORT INFORMATION
  Report Type: 
  Country: None (occurrence: None)
  Receive Date: 20100707
  Receipt Date: 20100604
  Transmission Date: 20110219
  Serious: Yes (Hospitalization)
  Sender: FDA-Public Use
  Company Number: US-BIOGENIDEC-2009BI029363

PATIENT
  Age: 59 Year
  Sex: Female

DRUGS (2)
  1. TYSABRI [Suspect]
     Indication: MULTIPLE SCLEROSIS
     Route: 042
     Dates: start: 20090130, end: 20100113
  2. TYSABRI [Suspect]
     Route: 042
     Dates: start: 20100416

REACTIONS (9)
  - BALANCE DISORDER [None]
  - CONSTIPATION [None]
  - DEPRESSION [None]
  - HYPOAESTHESIA [None]
  - MALABSORPTION [None]
  - VITREOUS FLOATERS [None]
  - WEIGHT DECREASED [None]
  - WEIGHT INCREASED [None]
  - WEIGHT LOSS POOR [None]
